FAERS Safety Report 12529131 (Version 2)
Quarter: 2016Q3

REPORT INFORMATION
  Report Type: Spontaneous
  Country: US (occurrence: US)
  Receive Date: 20160705
  Receipt Date: 20160718
  Transmission Date: 20161109
  Serious: No
  Sender: FDA-Public Use
  Company Number: US-TAKEDA-2016TUS011392

PATIENT
  Sex: Female

DRUGS (1)
  1. ENTYVIO [Suspect]
     Active Substance: VEDOLIZUMAB
     Indication: PRODUCT USED FOR UNKNOWN INDICATION
     Dosage: UNK
     Route: 042

REACTIONS (9)
  - Nausea [Unknown]
  - Hypoaesthesia [Unknown]
  - Alopecia [Unknown]
  - Abdominal distension [Unknown]
  - Muscle spasms [Unknown]
  - Fatigue [Unknown]
  - Fistula [Unknown]
  - Headache [Unknown]
  - Drug ineffective [Unknown]
